FAERS Safety Report 4469547-6 (Version None)
Quarter: 2004Q4

REPORT INFORMATION
  Report Type: 
  Country: None (occurrence: None)
  Receive Date: 20041005
  Receipt Date: 20041005
  Transmission Date: 20050328
  Serious: Yes (Other)
  Sender: FDA-Public Use
  Company Number: None

PATIENT
  Sex: Male
  Weight: 116 kg

DRUGS (3)
  1. PEG-INTRON [Suspect]
     Indication: HEPATITIS C
     Dosage: 75MCG  ONCE WEEKLY  SUBCUTANEOU
     Route: 058
     Dates: start: 20030922, end: 20040825
  2. RIBAVIRIN [Suspect]
     Indication: HEPATITIS C
     Dosage: 1200MG  DAILY  ORAL
     Route: 048
     Dates: start: 20030922, end: 20040825
  3. GLYBURIDE [Concomitant]

REACTIONS (5)
  - ALOPECIA [None]
  - DEPRESSION [None]
  - HEADACHE [None]
  - INSOMNIA [None]
  - RETINAL EXUDATES [None]
